FAERS Safety Report 6332906-0 (Version None)
Quarter: 2009Q3

REPORT INFORMATION
  Report Type: 
  Country: None (occurrence: None)
  Receive Date: 20090828
  Receipt Date: 20090819
  Transmission Date: 20100115
  Serious: Yes (Other)
  Sender: FDA-Public Use
  Company Number: GB-JNJFOC-20090805511

PATIENT
  Age: 22 Year
  Sex: Female

DRUGS (2)
  1. PARACETAMOL [Suspect]
     Dosage: 1 TABLET ONCE TOTAL
     Route: 048
  2. PARACETAMOL [Suspect]
     Indication: DRUG USE FOR UNKNOWN INDICATION
     Dosage: 2 TABLETS, ONCE TOTAL
     Route: 048

REACTIONS (2)
  - DRUG ERUPTION [None]
  - DRUG EXPOSURE DURING PREGNANCY [None]
